FAERS Safety Report 6427325-2 (Version None)
Quarter: 2009Q4

REPORT INFORMATION
  Report Type: 
  Country: None (occurrence: None)
  Receive Date: 20091104
  Receipt Date: 20091021
  Transmission Date: 20100525
  Serious: Yes (Hospitalization, Other)
  Sender: FDA-Public Use
  Company Number: NO-TEVA-213843ISR

PATIENT
  Sex: Female
  Weight: 73 kg

DRUGS (13)
  1. METHOTREXATE [Suspect]
     Indication: RHEUMATOID ARTHRITIS
     Route: 048
     Dates: start: 20080910, end: 20090325
  2. ADALIMUMAB [Suspect]
     Indication: RHEUMATOID ARTHRITIS
     Route: 058
     Dates: start: 20080910, end: 20090325
  3. PHENOXYMETHYLPENICILLIN [Concomitant]
     Indication: TOOTH INFECTION
     Dates: start: 20081121, end: 20081128
  4. FOLIC ACID [Concomitant]
     Dates: start: 20080912
  5. LEKOVIT CA [Concomitant]
     Dates: start: 20080626
  6. VACCINIUM MACROCARPON [Concomitant]
     Indication: URINARY TRACT INFECTION
     Dates: start: 20080924
  7. VACCINIUM MACROCARPON [Concomitant]
     Dates: end: 20090224
  8. MULTI-MINERAL [Concomitant]
     Dates: start: 20080401
  9. FISH OIL, HYDROGENATED [Concomitant]
     Route: 048
     Dates: start: 20080701
  10. PIVMECILLINAM [Concomitant]
     Indication: URINARY TRACT INFECTION
     Dates: start: 20080924, end: 20080930
  11. PIVMECILLINAM [Concomitant]
     Dates: start: 20090224, end: 20090303
  12. PREDNISOLONE SODIUM PHOSPHATE [Concomitant]
     Indication: RHEUMATOID ARTHRITIS
     Dates: start: 20090312
  13. PREDNISOLONE SODIUM PHOSPHATE [Concomitant]
     Dates: start: 20080626, end: 20090311

REACTIONS (1)
  - OSTEOMYELITIS [None]
